FAERS Safety Report 5719930-3 (Version None)
Quarter: 2008Q2

REPORT INFORMATION
  Report Type: 
  Country: None (occurrence: None)
  Receive Date: 20080423
  Receipt Date: 20070618
  Transmission Date: 20081010
  Serious: Yes (Hospitalization, Other)
  Sender: FDA-Public Use
  Company Number: 233752

PATIENT
  Age: 70 Year
  Sex: Female

DRUGS (10)
  1. AVASTIN [Suspect]
     Indication: NON-SMALL CELL LUNG CANCER
     Dosage: 850 MG
     Dates: start: 20061205
  2. GEMZAR [Concomitant]
  3. CISPLATIN [Concomitant]
  4. PRE-MEDICATIONS (UNK INGREDITENTS) (GENERIC COMPONENT(S) NOT KNOWN) [Concomitant]
  5. ZOFRAN [Concomitant]
  6. BENADRYL [Concomitant]
  7. TAGAMET [Concomitant]
  8. ATIVAN [Concomitant]
  9. DECADRON [Concomitant]
  10. TYLENOL (CAPLET) [Concomitant]

REACTIONS (2)
  - INFUSION RELATED REACTION [None]
  - MYOCARDIAL INFARCTION [None]
